FAERS Safety Report 25582933 (Version 3)
Quarter: 2025Q3

REPORT INFORMATION
  Report Type: Report from Study
  Country: EU (occurrence: EU)
  Receive Date: 20250720
  Receipt Date: 20250725
  Transmission Date: 20251020
  Serious: No
  Sender: ABBVIE
  Company Number: EU-ABBVIE-6377331

PATIENT
  Age: 61 Year
  Sex: Male

DRUGS (2)
  1. FOSCARBIDOPA\FOSLEVODOPA [Suspect]
     Active Substance: FOSCARBIDOPA\FOSLEVODOPA
     Indication: Parkinson^s disease
     Route: 058
     Dates: start: 20240506
  2. ONGENTYS [Suspect]
     Active Substance: OPICAPONE
     Indication: Bradykinesia
     Route: 065

REACTIONS (4)
  - Behaviour disorder [Recovering/Resolving]
  - Dyskinesia [Recovered/Resolved]
  - Nervous system disorder [Recovered/Resolved]
  - Bradykinesia [Unknown]

NARRATIVE: CASE EVENT DATE: 20250715
